FAERS Safety Report 22075809 (Version 1)
Quarter: 2023Q1

REPORT INFORMATION
  Report Type: Other
  Country: None (occurrence: US)
  Receive Date: 20230308
  Receipt Date: 20230308
  Transmission Date: 20230417
  Serious: Yes (Death)
  Sender: FDA-Public Use
  Company Number: US-B.Braun Medical Inc.-2138852

PATIENT
  Age: 34 Year
  Sex: Male

DRUGS (2)
  1. MAGNESIUM SULFATE IN DEXTROSE [Suspect]
     Active Substance: MAGNESIUM SULFATE
  2. IBUPROFEN [Suspect]
     Active Substance: IBUPROFEN

REACTIONS (14)
  - Intentional overdose [Fatal]
  - Drug abuse [Fatal]
  - Toxicity to various agents [Fatal]
  - Unresponsive to stimuli [Fatal]
  - Pupil fixed [Fatal]
  - Ileus [Fatal]
  - Gastrointestinal ischaemia [Fatal]
  - Disseminated intravascular coagulation [Fatal]
  - Ecchymosis [Fatal]
  - Complication associated with device [Fatal]
  - Haemorrhage [Fatal]
  - Intra-abdominal pressure increased [Fatal]
  - Blood lactic acid increased [Fatal]
  - Cardiac arrest [Fatal]
